FAERS Safety Report 23488283 (Version 1)
Quarter: 2024Q1

REPORT INFORMATION
  Report Type: Spontaneous
  Country: US (occurrence: US)
  Receive Date: 20240206
  Receipt Date: 20240206
  Transmission Date: 20240409
  Serious: No
  Sender: FDA-Public Use
  Company Number: US-SA-SAC20240130000932

PATIENT
  Sex: Female

DRUGS (11)
  1. DUPIXENT [Suspect]
     Active Substance: DUPILUMAB
     Indication: Illness
     Dosage: 300MG, QOW
     Route: 058
     Dates: start: 201912
  2. CLONIDINE [Suspect]
     Active Substance: CLONIDINE
  3. ASPIRIN [Concomitant]
     Active Substance: ASPIRIN
  4. CALCIUM\CHOLECALCIFEROL [Concomitant]
     Active Substance: CALCIUM\CHOLECALCIFEROL
  5. VITAMIN D3 [Concomitant]
     Active Substance: CHOLECALCIFEROL
  6. CURCUMIN [Concomitant]
     Active Substance: CURCUMIN
  7. GARLIC [Concomitant]
     Active Substance: GARLIC
  8. TYLENOL [Concomitant]
     Active Substance: ACETAMINOPHEN
  9. VITAMINS NOS [Concomitant]
     Active Substance: VITAMINS
     Indication: Gastrooesophageal reflux disease
  10. VITAMINS NOS [Concomitant]
     Active Substance: VITAMINS
     Indication: Oesophagitis
  11. HERBALS [Concomitant]
     Active Substance: HERBALS

REACTIONS (1)
  - Rash [Unknown]
